FAERS Safety Report 9148634 (Version 1)
Quarter: 2013Q1

REPORT INFORMATION
  Report Type: Spontaneous
  Country: US (occurrence: US)
  Receive Date: 20130308
  Receipt Date: 20130308
  Transmission Date: 20140127
  Serious: No
  Sender: FDA-Public Use
  Company Number: US-ENDO PHARMACEUTICALS INC.-OPCR20122085

PATIENT
  Age: 60 Year
  Sex: Female

DRUGS (3)
  1. OPANA ER [Suspect]
     Indication: PAIN
     Route: 048
     Dates: start: 2012, end: 2012
  2. OPANA ER [Suspect]
     Route: 048
     Dates: start: 2012, end: 2012
  3. OPANA ER [Concomitant]
     Indication: PAIN
     Dosage: UNKNOWN
     Route: 048
     Dates: end: 2012

REACTIONS (2)
  - Withdrawal syndrome [Unknown]
  - Vomiting [Unknown]
